FAERS Safety Report 19098658 (Version 1)
Quarter: 2021Q2

REPORT INFORMATION
  Report Type: Spontaneous
  Country: CZ (occurrence: CZ)
  Receive Date: 20210406
  Receipt Date: 20210406
  Transmission Date: 20210717
  Serious: Yes (Other)
  Sender: FDA-Public Use
  Company Number: CZ-AMNEAL PHARMACEUTICALS-2021-AMRX-01164

PATIENT
  Age: 8 Year
  Sex: Male

DRUGS (4)
  1. INFLIXIMAB [Suspect]
     Active Substance: INFLIXIMAB
     Indication: COLITIS ULCERATIVE
     Dosage: UNK
     Route: 065
  2. AZATHIOPRINE. [Suspect]
     Active Substance: AZATHIOPRINE
     Indication: COLITIS ULCERATIVE
     Dosage: UNK
     Route: 065
  3. AZATHIOPRINE. [Suspect]
     Active Substance: AZATHIOPRINE
     Indication: COELIAC DISEASE
  4. INFLIXIMAB [Suspect]
     Active Substance: INFLIXIMAB
     Indication: COELIAC DISEASE

REACTIONS (1)
  - Posterior reversible encephalopathy syndrome [Recovered/Resolved]
